FAERS Safety Report 18516913 (Version 1)
Quarter: 2020Q4

REPORT INFORMATION
  Report Type: Spontaneous
  Country: US (occurrence: US)
  Receive Date: 20201118
  Receipt Date: 20201118
  Transmission Date: 20210114
  Serious: Yes (Other)
  Sender: FDA-Public Use
  Company Number: None

PATIENT
  Age: 79 Year
  Sex: Male
  Weight: 113.4 kg

DRUGS (1)
  1. REMDESIVIR. [Suspect]
     Active Substance: REMDESIVIR
     Route: 041
     Dates: start: 20201112, end: 20201115

REACTIONS (2)
  - Therapy interrupted [None]
  - Bradycardia [None]

NARRATIVE: CASE EVENT DATE: 20201116
